FAERS Safety Report 18595995 (Version 1)
Quarter: 2020Q4

REPORT INFORMATION
  Report Type: Spontaneous
  Country: US (occurrence: US)
  Receive Date: 20201209
  Receipt Date: 20201209
  Transmission Date: 20210114
  Serious: No
  Sender: FDA-Public Use
  Company Number: US-SUPERNUS PHARMACEUTICALS, INC.-2020SUP00233

PATIENT
  Sex: Female
  Weight: 126.98 kg

DRUGS (5)
  1. TROKENDI XR [Suspect]
     Active Substance: TOPIRAMATE
     Dosage: ^TITRATED UP,^ 1X/DAY AT NIGHT
     Route: 048
  2. ELAVIL [Concomitant]
     Active Substance: AMITRIPTYLINE HYDROCHLORIDE
  3. IMITREX [Concomitant]
     Active Substance: SUMATRIPTAN SUCCINATE
  4. TROKENDI XR [Suspect]
     Active Substance: TOPIRAMATE
     Indication: MIGRAINE
     Dosage: 25 MG, 1X/DAY AT NIGHT
     Route: 048
  5. TROKENDI XR [Suspect]
     Active Substance: TOPIRAMATE
     Dosage: ^WEANED OFF,^ 1X/DAY AT NIGHT
     Route: 048

REACTIONS (5)
  - Abnormal behaviour [Recovered/Resolved]
  - Insomnia [Recovered/Resolved]
  - Feeling abnormal [Recovered/Resolved]
  - Unevaluable event [Not Recovered/Not Resolved]
  - Disorientation [Recovered/Resolved]
